FAERS Safety Report 7702770-3 (Version None)
Quarter: 2011Q3

REPORT INFORMATION
  Report Type: 
  Country: None (occurrence: None)
  Receive Date: 20110823
  Receipt Date: 20110815
  Transmission Date: 20111222
  Serious: Yes (Hospitalization, Other)
  Sender: FDA-Public Use
  Company Number: US-BAYER-2011-026818

PATIENT
  Age: 33 Year
  Sex: Female
  Weight: 111.11 kg

DRUGS (4)
  1. YASMIN [Suspect]
     Indication: ACNE
     Dosage: UNK
     Route: 048
     Dates: start: 20030701, end: 20060201
  2. LIPITOR [Concomitant]
     Dosage: UNK
     Dates: start: 20060101
  3. METFORMIN HCL [Concomitant]
     Dosage: UNK
     Dates: start: 20030101
  4. YASMIN [Suspect]
     Indication: CONTRACEPTION

REACTIONS (4)
  - CHOLELITHIASIS [None]
  - CHOLECYSTITIS CHRONIC [None]
  - GALLBLADDER DISORDER [None]
  - PAIN [None]
